FAERS Safety Report 18045726 (Version 5)
Quarter: 2020Q4

REPORT INFORMATION
  Report Type: Spontaneous
  Country: FR (occurrence: FR)
  Receive Date: 20200720
  Receipt Date: 20201106
  Transmission Date: 20210113
  Serious: Yes (Hospitalization, Other)
  Sender: FDA-Public Use
  Company Number: FR-MYLANLABS-2020M1064685

PATIENT
  Age: 53 Year
  Sex: Male
  Weight: 80 kg

DRUGS (22)
  1. PREGABALIN. [Suspect]
     Active Substance: PREGABALIN
     Indication: NEURALGIA
     Dosage: 75 MG, QD(25MG MATIN,MIDI ET SOIR)
     Route: 048
  2. LURBINECTEDIN [Suspect]
     Active Substance: LURBINECTEDIN
     Dosage: 6.4 MG, CYCLE (3.2 MG/M2 SOIT 6.4 MG)
     Route: 042
     Dates: start: 20200427, end: 20200615
  3. NICOPATCH [Concomitant]
     Active Substance: NICOTINE
     Indication: EX-TOBACCO USER
     Dosage: 1 DOSAGE FORM, QD (1/JOUR)
     Route: 003
  4. ESIDREX [Suspect]
     Active Substance: HYDROCHLOROTHIAZIDE
     Indication: HYPERTENSION
     Dosage: 25 MG, QD(EVERY 1DAY IN THE MORNING)
     Route: 048
  5. PREGABALIN. [Suspect]
     Active Substance: PREGABALIN
     Dosage: 25 MILLIGRAM
     Route: 048
  6. LURBINECTEDIN [Suspect]
     Active Substance: LURBINECTEDIN
     Indication: LUNG NEOPLASM MALIGNANT
     Dosage: 6.4 MG, QD(3.2MG/M2 SOIT)
     Route: 042
     Dates: start: 20200427, end: 20200615
  7. TOUJEO [Concomitant]
     Active Substance: INSULIN GLARGINE
     Indication: TYPE 2 DIABETES MELLITUS
     Dosage: 40 IU, QD(EVERY 1 DAY LE SOIR)
     Route: 058
  8. CANDESARTAN. [Suspect]
     Active Substance: CANDESARTAN
     Indication: HYPERTENSION
     Dosage: 16 MILLIGRAM, QD
     Route: 048
  9. IMODIUM [Concomitant]
     Active Substance: LOPERAMIDE HYDROCHLORIDE
     Indication: PRODUCT USED FOR UNKNOWN INDICATION
     Dosage: 2 MG(AS NECESSARY,2MG SI BESION)
     Route: 048
  10. IMOVANE [Concomitant]
     Active Substance: ZOPICLONE
     Indication: PRODUCT USED FOR UNKNOWN INDICATION
     Dosage: 7.5 MG, QD(COMPRIME PELLICULE SECABLE,EVERY 1 DAY AU COUCHER)
     Route: 048
  11. STAGID [Concomitant]
     Active Substance: METFORMIN PAMOATE
     Indication: TYPE 2 DIABETES MELLITUS
     Dosage: 2100 MG(EVERY 1 DAY 700 MG MATIN,MIDI ET SOIR)
     Route: 048
  12. ATROVENT [Concomitant]
     Active Substance: IPRATROPIUM BROMIDE
     Dosage: UNK
     Route: 055
  13. PREDNISONE. [Concomitant]
     Active Substance: PREDNISONE
     Indication: PRODUCT USED FOR UNKNOWN INDICATION
     Dosage: 80 MG(EVERY 01 CYCLE)
     Route: 048
  14. OXYCONTIN [Concomitant]
     Active Substance: OXYCODONE HYDROCHLORIDE
     Indication: CANCER PAIN
     Dosage: 40 MG, QD(EVERY 1 DAY,20MG MATIN ET SOIR)
     Route: 048
     Dates: start: 2019
  15. HUMALOG [Concomitant]
     Active Substance: INSULIN LISPRO
     Indication: TYPE 2 DIABETES MELLITUS
     Dosage: (PROTOCOLE SELON REPAS)UNK
     Route: 058
  16. FUROSEMIDE. [Suspect]
     Active Substance: FUROSEMIDE
     Indication: GENERALISED OEDEMA
     Dosage: 40 MG, QD(EVERY 01 DAY LE MATIN)
     Route: 048
     Dates: start: 20200611, end: 20200615
  17. KENZEN [Suspect]
     Active Substance: CANDESARTAN CILEXETIL
     Indication: HYPERTENSION
     Dosage: 16 MG, QD(EVERY 01 DAY LE MATIN)
     Route: 048
  18. OXYNORM [Concomitant]
     Active Substance: OXYCODONE HYDROCHLORIDE
     Indication: CANCER PAIN
     Dosage: 10 MG(1 GELULE SI BESOIN)
     Route: 048
     Dates: start: 2019
  19. NICOTINE. [Concomitant]
     Active Substance: NICOTINE
     Indication: EX-TOBACCO USER
     Dosage: 1 DF, QD(1/JOUR)(NICOPATCHLIB 21MG/24 HEURES,DISPOSITIF TRANSDERMIQUE)
     Route: 003
  20. OXYNORM [Concomitant]
     Active Substance: OXYCODONE HYDROCHLORIDE
     Dosage: 10 MG(1 GELULE SI BESOIN)
     Route: 048
     Dates: start: 2019
  21. BRICANYL [Concomitant]
     Active Substance: TERBUTALINE SULFATE
     Indication: PRODUCT USED FOR UNKNOWN INDICATION
     Dosage: 5 MG(RESPIRATORY,AS NECCESSARY,5MG SI BESION)
     Route: 055
  22. ATROVENT [Concomitant]
     Active Substance: IPRATROPIUM BROMIDE
     Indication: PRODUCT USED FOR UNKNOWN INDICATION
     Dosage: 0.5 MG SI BESOIN
     Route: 055

REACTIONS (1)
  - Acute kidney injury [Not Recovered/Not Resolved]

NARRATIVE: CASE EVENT DATE: 20200615
